FAERS Safety Report 24045094 (Version 5)
Quarter: 2025Q2

REPORT INFORMATION
  Report Type: Spontaneous
  Country: US (occurrence: US)
  Receive Date: 20240703
  Receipt Date: 20250416
  Transmission Date: 20250717
  Serious: Yes (Hospitalization, Disabling, Other)
  Sender: AMGEN
  Company Number: US-AMGEN-USASP2024127612

PATIENT
  Age: 62 Year
  Sex: Male

DRUGS (7)
  1. TEPEZZA [Suspect]
     Active Substance: TEPROTUMUMAB-TRBW
     Indication: Endocrine ophthalmopathy
     Route: 042
     Dates: start: 2021
  2. TEPEZZA [Suspect]
     Active Substance: TEPROTUMUMAB-TRBW
     Indication: Graves^ disease
     Route: 042
  3. TEPEZZA [Suspect]
     Active Substance: TEPROTUMUMAB-TRBW
     Route: 042
     Dates: start: 2023, end: 2023
  4. METHIMAZOLE [Concomitant]
     Active Substance: METHIMAZOLE
  5. LISINOPRIL [Concomitant]
     Active Substance: LISINOPRIL
     Route: 048
  6. PANTOPRAZOLE [Concomitant]
     Active Substance: PANTOPRAZOLE
  7. FLOMAX [Concomitant]
     Active Substance: TAMSULOSIN HYDROCHLORIDE
     Route: 048

REACTIONS (25)
  - Endocrine ophthalmopathy [Unknown]
  - Graves^ disease [Unknown]
  - Ototoxicity [Unknown]
  - Deafness bilateral [Not Recovered/Not Resolved]
  - Foreign body in eye [Recovered/Resolved]
  - Pain [Unknown]
  - Emotional distress [Unknown]
  - Discomfort [Unknown]
  - Impaired quality of life [Unknown]
  - Anxiety [Unknown]
  - Tinnitus [Not Recovered/Not Resolved]
  - Product use complaint [Unknown]
  - Hypermetropia [Unknown]
  - Eye pruritus [Unknown]
  - Masticatory pain [Unknown]
  - Pain of skin [Unknown]
  - Arthritis [Unknown]
  - Low density lipoprotein abnormal [Unknown]
  - Sleep disorder [Unknown]
  - Disturbance in attention [Unknown]
  - Corneal abrasion [Unknown]
  - Cerumen impaction [Unknown]
  - Neck pain [Unknown]
  - Hypertension [Unknown]
  - Headache [Unknown]

NARRATIVE: CASE EVENT DATE: 20230101
